FAERS Safety Report 5763785-8 (Version None)
Quarter: 2008Q2

REPORT INFORMATION
  Report Type: 
  Country: None (occurrence: None)
  Receive Date: 20080604
  Receipt Date: 20080604
  Transmission Date: 20081010
  Serious: Yes (Hospitalization)
  Sender: FDA-Public Use
  Company Number: None

PATIENT
  Sex: Male
  Weight: 84.5 kg

DRUGS (1)
  1. TEMOZOLOMIDE [Suspect]
     Dosage: 3150 MG

REACTIONS (6)
  - HERPES ZOSTER [None]
  - NO THERAPEUTIC RESPONSE [None]
  - PAIN [None]
  - RADIATION NECROSIS [None]
  - SKIN INFECTION [None]
  - THROMBOCYTOPENIA [None]
